FAERS Safety Report 10606900 (Version 1)
Quarter: 2014Q4

REPORT INFORMATION
  Report Type: Spontaneous
  Country: US (occurrence: None)
  Receive Date: 20141124
  Receipt Date: 20141124
  Transmission Date: 20150529
  Serious: No
  Sender: FDA-Public Use
  Company Number: None

PATIENT
  Age: 63 Year
  Sex: Male
  Weight: 105.3 kg

DRUGS (1)
  1. HEPARIN [Suspect]
     Active Substance: HEPARIN SODIUM
     Indication: THROMBOSIS PROPHYLAXIS
     Dosage: 500 UNITS TID SQ
     Dates: start: 20140706, end: 20140814

REACTIONS (14)
  - Blood pH decreased [None]
  - Unresponsive to stimuli [None]
  - Bradycardia [None]
  - Metabolic disorder [None]
  - Haemodialysis [None]
  - Toe amputation [None]
  - Foaming at mouth [None]
  - Ischaemic hepatitis [None]
  - Hypotension [None]
  - Heparin-induced thrombocytopenia [None]
  - Cerebral venous thrombosis [None]
  - Skin necrosis [None]
  - Osteomyelitis [None]
  - Sepsis [None]

NARRATIVE: CASE EVENT DATE: 20140814
